FAERS Safety Report 9360787 (Version 1)
Quarter: 2013Q2

REPORT INFORMATION
  Report Type: Spontaneous
  Country: GB (occurrence: GB)
  Receive Date: 20130621
  Receipt Date: 20130621
  Transmission Date: 20140414
  Serious: Yes (Other)
  Sender: FDA-Public Use
  Company Number: GB-ELI_LILLY_AND_COMPANY-GB201306004819

PATIENT
  Age: 71 Year
  Sex: Female

DRUGS (3)
  1. HUMALOG 50% LISPRO, 50% NPL [Suspect]
     Indication: DIABETES MELLITUS
     Dosage: 64 U, UNKNOWN
     Dates: start: 201301
  2. CLARITHROMYCIN [Concomitant]
  3. LANSOPRAZOLE [Concomitant]

REACTIONS (3)
  - Hepatomegaly [Unknown]
  - Blood glucose fluctuation [Unknown]
  - Viral infection [Unknown]
